FAERS Safety Report 7668614 (Version 2)
Quarter: 2013Q3

REPORT INFORMATION
  Report Type: Spontaneous
  Country: BR (occurrence: BR)
  Receive Date: 20101115
  Receipt Date: 20130723
  Transmission Date: 20140515
  Serious: No
  Sender: FDA-Public Use
  Company Number: BR-ROCHE-740615

PATIENT
  Sex: Female
  Weight: 61 kg

DRUGS (4)
  1. ROACUTAN [Suspect]
     Indication: ACNE
     Dosage: STRENGTH: 10 AND 20 MG
     Route: 048
     Dates: start: 201005, end: 2010
  2. ROACUTAN [Suspect]
     Dosage: STRENGTH: 20 MG
     Route: 048
     Dates: start: 2010, end: 2010
  3. LEVOTHYROXINE [Concomitant]
     Indication: THYROID DISORDER
     Dosage: DRUG REPORTED : LEVOID
     Route: 048
  4. MINIMA (BRAZIL) [Concomitant]
     Indication: CONTRACEPTION
     Route: 048

REACTIONS (2)
  - Pregnancy [Unknown]
  - No adverse event [Unknown]
